FAERS Safety Report 5750272-6 (Version None)
Quarter: 2008Q2

REPORT INFORMATION
  Report Type: 
  Country: None (occurrence: None)
  Receive Date: 20080522
  Receipt Date: 20080522
  Transmission Date: 20081010
  Serious: Yes (Hospitalization)
  Sender: FDA-Public Use
  Company Number: None

PATIENT
  Sex: Female

DRUGS (1)
  1. COPAXONE [Suspect]
     Dosage: 20MG QD S.Q.
     Route: 058
     Dates: start: 20080401

REACTIONS (3)
  - ABDOMINAL PAIN UPPER [None]
  - CHEST DISCOMFORT [None]
  - MENSTRUAL DISORDER [None]
